FAERS Safety Report 6476809-X (Version None)
Quarter: 2009Q4

REPORT INFORMATION
  Report Type: 
  Country: None (occurrence: None)
  Receive Date: 20091207
  Receipt Date: 20091127
  Transmission Date: 20100525
  Serious: Yes (Other)
  Sender: FDA-Public Use
  Company Number: PHHY2009CA07431

PATIENT

DRUGS (1)
  1. SANDOSTATIN LAR [Suspect]
     Indication: CARCINOID TUMOUR
     Dosage: 30 MG, QMO
     Route: 030
     Dates: start: 20080712

REACTIONS (4)
  - ACTIVITIES OF DAILY LIVING IMPAIRED [None]
  - JOINT STIFFNESS [None]
  - PAIN [None]
  - PORTAL VEIN THROMBOSIS [None]
